FAERS Safety Report 8190361 (Version 4)
Quarter: 2013Q2

REPORT INFORMATION
  Report Type: Spontaneous
  Country: US (occurrence: US)
  Receive Date: 20111019
  Receipt Date: 20130506
  Transmission Date: 20140414
  Serious: Yes (Hospitalization, Other)
  Sender: FDA-Public Use
  Company Number: US-ASTRAZENECA-2010SE52051

PATIENT
  Age: 82 Year
  Sex: Female

DRUGS (1)
  1. NEXIUM [Suspect]
     Route: 048

REACTIONS (7)
  - Adverse event [Unknown]
  - Hernia [Unknown]
  - Dementia Alzheimer^s type [Unknown]
  - Malaise [Unknown]
  - Dementia [Unknown]
  - Amnesia [Unknown]
  - Drug dose omission [Unknown]
